FAERS Safety Report 10525185 (Version 1)
Quarter: 2014Q4

REPORT INFORMATION
  Report Type: Spontaneous
  Country: US (occurrence: US)
  Receive Date: 20141017
  Receipt Date: 20141017
  Transmission Date: 20150528
  Serious: Yes (Death, Hospitalization, Other)
  Sender: FDA-Public Use
  Company Number: US-GLAXOSMITHKLINE-US2014GSK006711

PATIENT
  Age: 91 Year
  Sex: Male

DRUGS (1)
  1. PROMACTA [Suspect]
     Active Substance: ELTROMBOPAG OLAMINE
     Indication: LEUKAEMIA
     Dosage: UNK, U
     Route: 048

REACTIONS (3)
  - Immunodeficiency [Unknown]
  - Clostridium difficile infection [Fatal]
  - Death [Fatal]

NARRATIVE: CASE EVENT DATE: 201403
